FAERS Safety Report 9116298 (Version 2)
Quarter: 2013Q1

REPORT INFORMATION
  Report Type: Spontaneous
  Country: US (occurrence: US)
  Receive Date: 20130225
  Receipt Date: 20130329
  Transmission Date: 20140127
  Serious: Yes (Hospitalization)
  Sender: FDA-Public Use
  Company Number: US-009507513-1302USA010073

PATIENT
  Age: 70 Year
  Sex: Female

DRUGS (1)
  1. DULERA [Suspect]
     Route: 055

REACTIONS (1)
  - Dyspnoea [Recovered/Resolved]
